FAERS Safety Report 21438357 (Version 1)
Quarter: 2022Q4

REPORT INFORMATION
  Report Type: Spontaneous
  Country: HR (occurrence: HR)
  Receive Date: 20221011
  Receipt Date: 20221011
  Transmission Date: 20230113
  Serious: Yes (Other)
  Sender: FDA-Public Use
  Company Number: None

PATIENT
  Sex: Female

DRUGS (4)
  1. CLONAZEPAM [Suspect]
     Active Substance: CLONAZEPAM
     Dosage: 2 X 0.5 MG?DAILY DOSE: 1 MILLIGRAM
     Route: 048
     Dates: start: 20220828, end: 20220828
  2. FLUVOXAMINE MALEATE [Suspect]
     Active Substance: FLUVOXAMINE MALEATE
     Dosage: DAILY DOSE: 100 MILLIGRAM
     Route: 048
     Dates: start: 20220828, end: 20220828
  3. OXAZEPAM [Suspect]
     Active Substance: OXAZEPAM
     Dosage: 2 X 15 MG?DAILY DOSE: 30 MILLIGRAM
     Route: 048
     Dates: start: 20220828, end: 20220828
  4. OLANZAPINE [Suspect]
     Active Substance: OLANZAPINE
     Dosage: DAILY DOSE: 5 MILLIGRAM
     Route: 048
     Dates: start: 20220828, end: 20220828

REACTIONS (2)
  - Renal failure [Unknown]
  - Hepatic failure [Unknown]

NARRATIVE: CASE EVENT DATE: 20220829
